FAERS Safety Report 8321843-8 (Version None)
Quarter: 2012Q2

REPORT INFORMATION
  Report Type: 
  Country: None (occurrence: None)
  Receive Date: 20120430
  Receipt Date: 20120423
  Transmission Date: 20120825
  Serious: Yes (Hospitalization)
  Sender: FDA-Public Use
  Company Number: US-GLAXOSMITHKLINE-A0975506A

PATIENT
  Age: 64 Year
  Sex: Male

DRUGS (1)
  1. FLOLAN [Suspect]
     Indication: PRODUCT USED FOR UNKNOWN INDICATION
     Dosage: 22NGKM CONTINUOUS
     Route: 065
     Dates: start: 20070416

REACTIONS (2)
  - SYNCOPE [None]
  - CHEST PAIN [None]
